FAERS Safety Report 8843333 (Version 2)
Quarter: 2015Q2

REPORT INFORMATION
  Report Type: Report from Study
  Country: US (occurrence: US)
  Receive Date: 20121016
  Receipt Date: 20150611
  Transmission Date: 20150821
  Serious: Yes (Death)
  Sender: FDA-Public Use
  Company Number: US-ROCHE-1132348

PATIENT
  Sex: Male

DRUGS (3)
  1. GEMZAR [Concomitant]
     Active Substance: GEMCITABINE HYDROCHLORIDE
  2. DOCETAXEL. [Concomitant]
     Active Substance: DOCETAXEL
  3. XELODA [Suspect]
     Active Substance: CAPECITABINE
     Indication: PANCREATIC CARCINOMA
     Dosage: 500MG 2 TAB IN AM + 500MG 1 TAB IN PM FOR 14 DAYS
     Route: 048
     Dates: start: 200905

REACTIONS (2)
  - Death [Fatal]
  - Off label use [Unknown]
